FAERS Safety Report 6742702-8 (Version None)
Quarter: 2010Q2

REPORT INFORMATION
  Report Type: 
  Country: None (occurrence: None)
  Receive Date: 20100526
  Receipt Date: 20091106
  Transmission Date: 20101027
  Serious: No
  Sender: FDA-Public Use
  Company Number: US-ABBOTT-09P-163-0607784-00

PATIENT
  Sex: Female
  Weight: 123.03 kg

DRUGS (6)
  1. ZEMPLAR [Suspect]
     Indication: RENAL IMPAIRMENT
     Dates: start: 20090301
  2. RUYATAZ [Concomitant]
     Indication: RENAL IMPAIRMENT
  3. ZIAGEN [Concomitant]
     Indication: RENAL IMPAIRMENT
  4. DAPSONE [Concomitant]
     Indication: DRUG USE FOR UNKNOWN INDICATION
  5. ATENOLOL [Concomitant]
     Indication: HYPERTENSION
  6. EPIVIR [Concomitant]
     Indication: DRUG USE FOR UNKNOWN INDICATION

REACTIONS (2)
  - COUGH [None]
  - INFLUENZA [None]
